FAERS Safety Report 8047067-X (Version None)
Quarter: 2012Q1

REPORT INFORMATION
  Report Type: 
  Country: None (occurrence: None)
  Receive Date: 20120116
  Receipt Date: 20120113
  Transmission Date: 20120608
  Serious: Yes (Other)
  Sender: FDA-Public Use
  Company Number: CA-BAYER-200914876GPV

PATIENT
  Age: 45 Year
  Sex: Female

DRUGS (1)
  1. BETASERON [Suspect]
     Indication: MULTIPLE SCLEROSIS
     Route: 058

REACTIONS (10)
  - INJECTION SITE CELLULITIS [None]
  - PANNICULITIS [None]
  - STAPHYLOCOCCAL INFECTION [None]
  - INJECTION SITE INDURATION [None]
  - INJECTION SITE ERYTHEMA [None]
  - LIPOATROPHY [None]
  - SKIN PLAQUE [None]
  - SUBCUTANEOUS ABSCESS [None]
  - INJECTION SITE NECROSIS [None]
  - INJECTION SITE PAIN [None]
